FAERS Safety Report 15551053 (Version 1)
Quarter: 2018Q4

REPORT INFORMATION
  Report Type: Spontaneous
  Country: TR (occurrence: TR)
  Receive Date: 20181025
  Receipt Date: 20181025
  Transmission Date: 20190205
  Serious: Yes (Other)
  Sender: FDA-Public Use
  Company Number: TR-MYLANLABS-2018M1077296

PATIENT
  Age: 48 Year
  Sex: Male

DRUGS (2)
  1. LIDOCAINE. [Suspect]
     Active Substance: LIDOCAINE
     Indication: LOCAL ANAESTHESIA
     Dosage: 30 ML OF LOCAL ANESTHETIC MIXTURE (0.33% BUPIVACAINE WITH LIDOCAINE)
     Route: 065
  2. BUPIVACAINE. [Suspect]
     Active Substance: BUPIVACAINE
     Indication: LOCAL ANAESTHESIA
     Dosage: 30 ML OF LOCAL ANESTHETIC MIXTURE (0.33% BUPIVACAINE WITH LIDOCAINE)
     Route: 065

REACTIONS (2)
  - Motor dysfunction [Recovered/Resolved]
  - Anaesthetic complication neurological [Recovered/Resolved]
